FAERS Safety Report 8382217-7 (Version None)
Quarter: 2012Q2

REPORT INFORMATION
  Report Type: 
  Country: None (occurrence: None)
  Receive Date: 20120524
  Receipt Date: 20120518
  Transmission Date: 20120825
  Serious: No
  Sender: FDA-Public Use
  Company Number: US-PFIZER INC-2012122281

PATIENT
  Sex: Male

DRUGS (1)
  1. PROTONIX [Suspect]
     Dosage: UNK

REACTIONS (5)
  - FEELING ABNORMAL [None]
  - FRUSTRATION [None]
  - BACK PAIN [None]
  - PAIN [None]
  - IMPAIRED DRIVING ABILITY [None]
